FAERS Safety Report 15553768 (Version 1)
Quarter: 2018Q4

REPORT INFORMATION
  Report Type: Spontaneous
  Country: US (occurrence: US)
  Receive Date: 20181026
  Receipt Date: 20181026
  Transmission Date: 20190205
  Serious: No
  Sender: FDA-Public Use
  Company Number: US-TEVA-2018-US-968474

PATIENT
  Sex: Male

DRUGS (4)
  1. COPAXONE [Suspect]
     Active Substance: GLATIRAMER ACETATE
     Indication: MULTIPLE SCLEROSIS
     Dosage: FORM STRENGTH: UNKNOWN
     Route: 065
  2. BACKLOFIN [Suspect]
     Active Substance: BACLOFEN
     Route: 065
  3. LYRICA [Suspect]
     Active Substance: PREGABALIN
     Route: 065
  4. CLONOPIN [Suspect]
     Active Substance: CLONAZEPAM
     Route: 065

REACTIONS (3)
  - Muscle spasticity [Unknown]
  - Fall [Unknown]
  - Disturbance in attention [Unknown]
